FAERS Safety Report 12505747 (Version 1)
Quarter: 2016Q2

REPORT INFORMATION
  Report Type: Report from Study
  Country: US (occurrence: US)
  Receive Date: 20160628
  Receipt Date: 20160628
  Transmission Date: 20160815
  Serious: Yes (Hospitalization, Other)
  Sender: FDA-Public Use
  Company Number: US-BAYER-2016-059650

PATIENT
  Age: 45 Year
  Sex: Female

DRUGS (1)
  1. BETASERON [Suspect]
     Active Substance: INTERFERON BETA-1B
     Indication: MULTIPLE SCLEROSIS
     Dosage: 8 MIU, QOD
     Route: 058
     Dates: start: 20060325

REACTIONS (4)
  - Pyomyositis [None]
  - Injection site cellulitis [Recovering/Resolving]
  - Injection site inflammation [Recovering/Resolving]
  - Musculoskeletal disorder [None]

NARRATIVE: CASE EVENT DATE: 20160323
